FAERS Safety Report 9284206 (Version 3)
Quarter: 2013Q3

REPORT INFORMATION
  Report Type: Report from Study
  Country: DE (occurrence: DE)
  Receive Date: 20130510
  Receipt Date: 20130715
  Transmission Date: 20140515
  Serious: Yes (Hospitalization)
  Sender: FDA-Public Use
  Company Number: DE-PFIZER INC-2013140380

PATIENT
  Age: 59 Year
  Sex: Male
  Weight: 80 kg

DRUGS (31)
  1. TEMSIROLIMUS [Suspect]
     Dosage: 25 MG, UNK
     Dates: start: 20130418
  2. CISPLATIN [Suspect]
     Dosage: 200
     Dates: start: 20130420, end: 20130420
  3. CYTARABINE [Suspect]
     Dosage: 2000
     Dates: start: 20130421, end: 20130421
  4. RITUXIMAB [Suspect]
     Dosage: 750
     Dates: start: 20130419, end: 20130419
  5. DEXAMETHASONE [Suspect]
     Dosage: 40
     Dates: start: 20130420, end: 20130423
  6. ASS [Concomitant]
     Indication: PROPHYLAXIS
     Dosage: 100MG
     Route: 048
     Dates: start: 2004
  7. BELOC ZOK [Concomitant]
     Indication: HYPERTENSION
     Dosage: 25MG
     Route: 048
     Dates: start: 2006
  8. SIMVASTATIN [Concomitant]
     Indication: HYPERLIPIDAEMIA
     Dosage: 40MG
     Route: 048
     Dates: start: 2006
  9. SPIRIVA [Concomitant]
     Indication: CHRONIC OBSTRUCTIVE PULMONARY DISEASE
     Dosage: 18 UG
     Dates: start: 2011
  10. OXIS [Concomitant]
     Indication: CHRONIC OBSTRUCTIVE PULMONARY DISEASE
     Dosage: 12 UG
     Dates: start: 2011
  11. KALINOR [Concomitant]
     Indication: PROPHYLAXIS
     Dosage: UNK
     Dates: start: 20130416
  12. PANTOZOL [Concomitant]
     Indication: PROPHYLAXIS
     Dosage: 40 MG
     Route: 048
     Dates: start: 20130416
  13. LYRICA [Concomitant]
     Indication: POLYNEUROPATHY
     Dosage: 150 MG
     Route: 048
     Dates: start: 2011
  14. DECORTIN-H [Concomitant]
     Dosage: 100MG
     Route: 048
     Dates: start: 20130411, end: 20130419
  15. DECORTIN-H [Concomitant]
     Dosage: 50MG
     Route: 048
     Dates: start: 20130424, end: 20130424
  16. ALLOPURINOL [Concomitant]
     Indication: PROPHYLAXIS
     Dosage: 300
     Route: 048
     Dates: start: 20130411, end: 20130418
  17. COTRIM FORTE ^HEUMANN^ [Concomitant]
     Indication: PROPHYLAXIS
     Dosage: 1920 MG, 2X/WEEK
     Route: 048
     Dates: start: 20130411
  18. EFFLUMIDEX [Concomitant]
     Indication: PROPHYLAXIS
     Dosage: UNK
     Dates: start: 20130419, end: 20130423
  19. NICOTINE [Concomitant]
     Indication: SMOKING CESSATION THERAPY
     Dosage: 52.5 IU
     Route: 062
     Dates: start: 2011
  20. MCP ^ALIUD PHARMA^ [Concomitant]
     Indication: NAUSEA
     Dosage: 120 GTT
     Route: 048
     Dates: start: 20110425
  21. MCP ^ALIUD PHARMA^ [Concomitant]
     Indication: VOMITING
  22. KEVATRIL [Concomitant]
     Indication: NAUSEA
     Dosage: 2 MG
     Route: 048
     Dates: start: 20130425
  23. KEVATRIL [Concomitant]
     Indication: VOMITING
  24. AMPHO-MORONAL [Concomitant]
     Indication: PROPHYLAXIS
     Dosage: UNK
     Route: 048
     Dates: start: 20130420, end: 20130423
  25. FRAGMIN P [Concomitant]
     Indication: PROPHYLAXIS
     Dosage: UNK
     Route: 058
     Dates: start: 20130414
  26. SAB SIMPLEX [Concomitant]
     Indication: FLATULENCE
     Dosage: UNK
     Route: 048
     Dates: start: 20130422, end: 20130422
  27. TAVOR [Concomitant]
     Indication: SLEEP DISORDER
     Dosage: 1 MG
     Route: 048
     Dates: start: 20130421, end: 20130421
  28. BENURON [Concomitant]
     Indication: TOOTHACHE
     Dosage: 1G
     Route: 048
     Dates: start: 20130421, end: 20130421
  29. VOMEX A ^ENDOPHARM^ [Concomitant]
     Indication: NAUSEA
     Dosage: 100 MG
     Route: 042
     Dates: start: 20130421, end: 20130421
  30. MCP ^ALIUD PHARMA^ [Concomitant]
     Indication: NAUSEA
     Dosage: 20 GTT
     Route: 048
     Dates: start: 20130422, end: 20130422
  31. TEPILTA [Concomitant]
     Indication: DYSPEPSIA
     Dosage: UNK
     Route: 048
     Dates: start: 20130422, end: 20130422

REACTIONS (1)
  - Toothache [Recovered/Resolved]
